FAERS Safety Report 21710672 (Version 2)
Quarter: 2022Q4

REPORT INFORMATION
  Report Type: Spontaneous
  Country: JP (occurrence: JP)
  Receive Date: 20221212
  Receipt Date: 20221227
  Transmission Date: 20230113
  Serious: Yes (Other)
  Sender: FDA-Public Use
  Company Number: JP-AMGEN-JPNSP2022212118

PATIENT
  Age: 87 Year
  Sex: Female

DRUGS (3)
  1. EVENITY [Suspect]
     Active Substance: ROMOSOZUMAB-AQQG
     Indication: Osteoporosis
     Dosage: 210 MILLIGRAM
     Route: 058
     Dates: start: 20220210, end: 2022
  2. EVENITY [Suspect]
     Active Substance: ROMOSOZUMAB-AQQG
     Indication: Compression fracture
     Dosage: 210 MILLIGRAM, Q2MO
     Route: 058
     Dates: start: 2022
  3. ELDECALCITOL [Concomitant]
     Active Substance: ELDECALCITOL
     Dosage: UNK (0.75)

REACTIONS (2)
  - Renal impairment [Unknown]
  - Blood calcium decreased [Recovered/Resolved]

NARRATIVE: CASE EVENT DATE: 20220101
